FAERS Safety Report 7285334-8 (Version None)
Quarter: 2011Q1

REPORT INFORMATION
  Report Type: 
  Country: None (occurrence: None)
  Receive Date: 20110210
  Receipt Date: 20110127
  Transmission Date: 20110831
  Serious: Yes (Other)
  Sender: FDA-Public Use
  Company Number: DE-BAUSCH-2011BL000519

PATIENT
  Age: 84 Year
  Sex: Female

DRUGS (1)
  1. LOTEMAX [Suspect]
     Indication: POSTOPERATIVE CARE
     Route: 047
     Dates: start: 20101130, end: 20101202

REACTIONS (1)
  - SUDDEN HEARING LOSS [None]
